FAERS Safety Report 6846090-8 (Version None)
Quarter: 2010Q3

REPORT INFORMATION
  Report Type: 
  Country: None (occurrence: None)
  Receive Date: 20100715
  Receipt Date: 20080204
  Transmission Date: 20110219
  Serious: No
  Sender: FDA-Public Use
  Company Number: US-PFIZER INC-2007073703

PATIENT
  Sex: Female
  Weight: 75 kg

DRUGS (10)
  1. CHANTIX [Suspect]
     Indication: SMOKING CESSATION THERAPY
     Route: 048
     Dates: start: 20070701
  2. ZOLOFT [Suspect]
     Indication: BIPOLAR I DISORDER
     Route: 048
     Dates: start: 20070601
  3. NORVASC [Concomitant]
  4. LEVOXYL [Concomitant]
  5. ACCUPRIL [Concomitant]
  6. SPIRIVA [Concomitant]
  7. ACETYLSALICYLIC ACID [Concomitant]
  8. VITAMIN C [Concomitant]
  9. VITAMIN E [Concomitant]
  10. CALCIUM [Concomitant]

REACTIONS (2)
  - DEPRESSION [None]
  - VITAMIN B12 DEFICIENCY [None]
